FAERS Safety Report 7883209-4 (Version None)
Quarter: 2011Q4

REPORT INFORMATION
  Report Type: 
  Country: None (occurrence: None)
  Receive Date: 20111101
  Receipt Date: 20111101
  Transmission Date: 20120403
  Serious: Yes (Hospitalization)
  Sender: FDA-Public Use
  Company Number: None

PATIENT
  Age: 53 Year
  Sex: Female
  Weight: 61.4 kg

DRUGS (1)
  1. PACLITAXEL [Suspect]
     Indication: NEOPLASM MALIGNANT
     Dosage: 350 MG ONCE IV
     Route: 042
     Dates: start: 20110915, end: 20110915

REACTIONS (5)
  - FLUSHING [None]
  - MYALGIA [None]
  - DYSPNOEA [None]
  - HYPOTENSION [None]
  - RESPIRATORY DEPRESSION [None]
